FAERS Safety Report 25122836 (Version 1)
Quarter: 2025Q1

REPORT INFORMATION
  Report Type: Spontaneous
  Country: US (occurrence: US)
  Receive Date: 20250326
  Receipt Date: 20250326
  Transmission Date: 20250409
  Serious: Yes (Other)
  Sender: TAKEDA
  Company Number: US-TAKEDA-2025TUS028952

PATIENT
  Sex: Female

DRUGS (1)
  1. GAMMAGARD LIQUID [Suspect]
     Active Substance: HUMAN IMMUNOGLOBULIN G
     Indication: Chronic inflammatory demyelinating polyradiculoneuropathy
     Dosage: 58 GRAM, MONTHLY

REACTIONS (9)
  - Urinary retention [Unknown]
  - Faeces discoloured [Unknown]
  - Urinary hesitation [Unknown]
  - Oropharyngeal pain [Unknown]
  - Muscle spasms [Unknown]
  - Hyperhidrosis [Unknown]
  - Chills [Unknown]
  - Diarrhoea [Unknown]
  - Headache [Unknown]
